FAERS Safety Report 6332494-9 (Version None)
Quarter: 2009Q3

REPORT INFORMATION
  Report Type: 
  Country: None (occurrence: None)
  Receive Date: 20090828
  Receipt Date: 20080825
  Transmission Date: 20100115
  Serious: No
  Sender: FDA-Public Use
  Company Number: A0744470A

PATIENT
  Sex: Female

DRUGS (6)
  1. MALARONE [Suspect]
     Indication: MALARIA
     Dosage: 1TAB FOUR TIMES PER DAY
     Route: 048
     Dates: start: 20080617
  2. MEPRON [Suspect]
     Route: 048
  3. ZITHROMAX [Concomitant]
  4. ATROVENT SPRAY [Concomitant]
  5. DIFLUCAN [Concomitant]
  6. HYDROCORTISONE [Concomitant]

REACTIONS (4)
  - ABDOMINAL DISCOMFORT [None]
  - HYPERHIDROSIS [None]
  - PYREXIA [None]
  - WEIGHT INCREASED [None]
